FAERS Safety Report 8234861-5 (Version None)
Quarter: 2012Q1

REPORT INFORMATION
  Report Type: 
  Country: None (occurrence: None)
  Receive Date: 20120322
  Receipt Date: 20120312
  Transmission Date: 20120608
  Serious: Yes (Death)
  Sender: FDA-Public Use
  Company Number: DKLU1075305

PATIENT
  Age: 43 Year
  Sex: Female

DRUGS (5)
  1. TRANXENE [Suspect]
     Indication: PRODUCT USED FOR UNKNOWN INDICATION
     Dosage: 10 MG MILLIGRAM(S), DAILY, ORAL
     Route: 048
     Dates: start: 20111002, end: 20111004
  2. TETANUS VACCINE ^PASTEUR^ (TETANUS VACCINE) [Suspect]
     Indication: PRODUCT USED FOR UNKNOWN INDICATION
     Dosage: 1 DF DOSAGE FORM, ONCE
     Dates: start: 20111003, end: 20111003
  3. TERCIAN (CYAMEMAZINE) (25 MG, FILM-COATED TABLET) [Suspect]
     Indication: BIPOLAR DISORDER
     Dosage: 25 MG MILLIGRAM(S), DAILY, ORAL
     Route: 048
     Dates: start: 20111002, end: 20111004
  4. VALPROATE SODIUM [Suspect]
     Indication: BIPOLAR DISORDER
     Dosage: 500 MG MILLIGRAM(S), DAILY, ORAL
     Route: 048
     Dates: start: 20111002, end: 20111004
  5. ABILIFY [Suspect]
     Indication: BIPOLAR DISORDER
     Dosage: 10 MG ORALLY
     Route: 048
     Dates: start: 20111002, end: 20111004

REACTIONS (2)
  - WOUND [None]
  - CARDIO-RESPIRATORY ARREST [None]
